FAERS Safety Report 10165366 (Version 1)
Quarter: 2014Q2

REPORT INFORMATION
  Report Type: Spontaneous
  Country: US (occurrence: US)
  Receive Date: 20140510
  Receipt Date: 20140510
  Transmission Date: 20141212
  Serious: No
  Sender: FDA-Public Use
  Company Number: US-BRISTOL-MYERS SQUIBB COMPANY-20415808

PATIENT
  Age: 40 Year
  Sex: Male
  Weight: 112.47 kg

DRUGS (14)
  1. BYDUREON [Suspect]
     Dates: start: 2014
  2. METFORMIN [Concomitant]
  3. INVOKANA [Concomitant]
  4. ASPIRIN [Concomitant]
  5. MULTIVITAMIN [Concomitant]
  6. CAFFEINE [Concomitant]
  7. DHEA [Concomitant]
  8. LISINOPRIL [Concomitant]
  9. BIOTIN [Concomitant]
  10. VITAMIN B COMPLEX [Concomitant]
  11. SAW PALMETTO [Concomitant]
  12. LYRICA [Concomitant]
  13. VITAMIN D [Concomitant]
  14. FISH OIL [Concomitant]

REACTIONS (3)
  - Injection site pruritus [Not Recovered/Not Resolved]
  - Injection site mass [Not Recovered/Not Resolved]
  - Product quality issue [Unknown]
